FAERS Safety Report 8737978 (Version 6)
Quarter: 2015Q1

REPORT INFORMATION
  Report Type: Spontaneous
  Country: US (occurrence: US)
  Receive Date: 20120823
  Receipt Date: 20150202
  Transmission Date: 20150721
  Serious: Yes (Hospitalization, Disabling, Other)
  Sender: FDA-Public Use
  Company Number: US-MERCK-1208USA004423

PATIENT
  Sex: Female
  Weight: 57.6 kg

DRUGS (4)
  1. ALENDRONATE SODIUM. [Suspect]
     Active Substance: ALENDRONATE SODIUM
     Indication: OSTEOPENIA
     Dosage: 70 MG, UNK
     Route: 048
     Dates: start: 200811, end: 201006
  2. PREMARIN [Concomitant]
     Active Substance: ESTROGENS, CONJUGATED
  3. FOSAMAX [Suspect]
     Active Substance: ALENDRONATE SODIUM
     Dosage: UNK
     Route: 048
     Dates: start: 2000, end: 201006
  4. FOSAMAX PLUS D [Suspect]
     Active Substance: ALENDRONATE SODIUM\CHOLECALCIFEROL
     Indication: OSTEOPENIA
     Dosage: 70/2800, UNK
     Route: 048
     Dates: start: 2002, end: 200811

REACTIONS (45)
  - Femur fracture [Not Recovered/Not Resolved]
  - Sinus operation [Unknown]
  - Skeletal injury [Not Recovered/Not Resolved]
  - Low turnover osteopathy [Not Recovered/Not Resolved]
  - Stress [Unknown]
  - Osteoarthritis [Unknown]
  - Asthenia [Unknown]
  - Musculoskeletal discomfort [Unknown]
  - Gastrooesophageal reflux disease [Unknown]
  - Colporrhaphy [Unknown]
  - Spinal column stenosis [Unknown]
  - Constipation [Unknown]
  - Breast neoplasm [Unknown]
  - Breast lump removal [Unknown]
  - Chest pain [Unknown]
  - Umbilical hernia [Unknown]
  - Femur fracture [Unknown]
  - Joint effusion [Unknown]
  - Osteoporosis [Unknown]
  - Surgery [Unknown]
  - Anxiety [Unknown]
  - Colpocele [Unknown]
  - Fibrocystic breast disease [Unknown]
  - Cyst [Unknown]
  - Hypercholesterolaemia [Unknown]
  - Fibromyalgia [Unknown]
  - Open reduction of fracture [Unknown]
  - Spinal laminectomy [Unknown]
  - Osteoma [Unknown]
  - Bursitis [Unknown]
  - Hypertension [Unknown]
  - Bone disorder [Unknown]
  - Atrophic vulvovaginitis [Unknown]
  - Metastatic neoplasm [Unknown]
  - Biopsy cervix [Unknown]
  - Pollakiuria [Unknown]
  - Arthropathy [Unknown]
  - Fall [Unknown]
  - Diverticulum [Unknown]
  - Crystal arthropathy [Unknown]
  - Femur fracture [Unknown]
  - Plasma cell myeloma [Unknown]
  - Arthritis [Unknown]
  - Limb discomfort [Unknown]
  - Arthralgia [Unknown]

NARRATIVE: CASE EVENT DATE: 2002
